FAERS Safety Report 15879685 (Version 2)
Quarter: 2020Q2

REPORT INFORMATION
  Report Type: Report from Study
  Country: JP (occurrence: JP)
  Receive Date: 20190128
  Receipt Date: 20200507
  Transmission Date: 20200713
  Serious: Yes (Hospitalization, Other)
  Sender: FDA-Public Use
  Company Number: PHHY2014JP178891

PATIENT
  Age: 40 Year
  Sex: Female
  Weight: 39 kg

DRUGS (1)
  1. VOTRIENT [Suspect]
     Active Substance: PAZOPANIB HYDROCHLORIDE
     Indication: INFLAMMATORY MYOFIBROBLASTIC TUMOUR
     Dosage: 800 MG, QD
     Route: 048
     Dates: start: 20130205, end: 20131003

REACTIONS (5)
  - Hypertension [Recovering/Resolving]
  - Hair colour changes [Recovered/Resolved]
  - Skin ulcer [Not Recovered/Not Resolved]
  - Wound dehiscence [Recovering/Resolving]
  - Tumour necrosis [Recovering/Resolving]

NARRATIVE: CASE EVENT DATE: 20130219
